FAERS Safety Report 7672551-8 (Version None)
Quarter: 2011Q3

REPORT INFORMATION
  Report Type: 
  Country: None (occurrence: None)
  Receive Date: 20110809
  Receipt Date: 20110803
  Transmission Date: 20111222
  Serious: Yes (Life-Threatening, Hospitalization, Other)
  Sender: FDA-Public Use
  Company Number: BR-ASTRAZENECA-2011SE47031

PATIENT
  Age: 83 Year
  Sex: Female
  Weight: 63 kg

DRUGS (5)
  1. BENICAR [Concomitant]
     Indication: HYPERTENSION
     Route: 048
     Dates: start: 20080101
  2. JANUMET [Concomitant]
  3. ARIMIDEX [Suspect]
     Indication: BREAST CANCER
     Route: 048
     Dates: start: 20080101, end: 20110728
  4. ARIMIDEX [Suspect]
     Route: 048
     Dates: start: 20110803
  5. INSULIN [Concomitant]
     Indication: DIABETES MELLITUS
     Route: 058
     Dates: start: 20090101, end: 20110101

REACTIONS (5)
  - ASTHENIA [None]
  - DIABETES MELLITUS [None]
  - BLOOD GLUCOSE INCREASED [None]
  - FEELING OF BODY TEMPERATURE CHANGE [None]
  - DIABETES MELLITUS INADEQUATE CONTROL [None]
